FAERS Safety Report 9490037 (Version 3)
Quarter: 2013Q4

REPORT INFORMATION
  Report Type: Report from Study
  Country: US (occurrence: US)
  Receive Date: 20130829
  Receipt Date: 20131017
  Transmission Date: 20140711
  Serious: Yes (Other)
  Sender: FDA-Public Use
  Company Number: US-ACTELION-A-NJ2013-87658

PATIENT
  Age: 59 Year
  Sex: Female

DRUGS (7)
  1. TRACLEER [Suspect]
     Indication: PULMONARY HYPERTENSION
     Dosage: 125 MG, BID
     Route: 048
     Dates: start: 201212
  2. TRACLEER [Suspect]
     Dosage: 62.5 MG, UNK
     Route: 048
     Dates: start: 201211
  3. COUMADIN [Concomitant]
     Dosage: 7.5 - 10 MG DAILY
     Dates: start: 1996
  4. CALCIUM [Concomitant]
     Dosage: 650 MG, QD
  5. LEVOTHYROXINE [Concomitant]
     Dosage: 0.75 MG, QD
  6. SPIRONOLACTONE [Concomitant]
  7. EFFEXOR [Concomitant]
     Dosage: 150 - 225 MG DALIY

REACTIONS (2)
  - Pulmonary thrombosis [Recovering/Resolving]
  - Endarterectomy [Recovering/Resolving]
